FAERS Safety Report 7647165-6 (Version None)
Quarter: 2011Q3

REPORT INFORMATION
  Report Type: 
  Country: None (occurrence: None)
  Receive Date: 20110801
  Receipt Date: 20110719
  Transmission Date: 20111222
  Serious: Yes (Other)
  Sender: FDA-Public Use
  Company Number: US-ROCHE-754388

PATIENT
  Sex: Female
  Weight: 49.9 kg

DRUGS (3)
  1. ACCUTANE [Suspect]
     Dosage: 20 MG, 70 MG DAILY FOR 2 MONTHS AND 80 MG DAILY FOR 5 MONTHS
     Route: 048
     Dates: start: 19991101, end: 20010601
  2. TYLENOL-500 [Concomitant]
  3. EFFEXOR XR [Concomitant]
     Indication: ANXIETY

REACTIONS (8)
  - GASTROINTESTINAL INJURY [None]
  - IRRITABLE BOWEL SYNDROME [None]
  - HAEMORRHOIDS [None]
  - COLITIS ULCERATIVE [None]
  - DEPRESSION [None]
  - GASTRIC ULCER [None]
  - INFLAMMATORY BOWEL DISEASE [None]
  - XEROSIS [None]
